FAERS Safety Report 8133660-2 (Version None)
Quarter: 2012Q1

REPORT INFORMATION
  Report Type: 
  Country: None (occurrence: None)
  Receive Date: 20120213
  Receipt Date: 20120208
  Transmission Date: 20120608
  Serious: Yes (Hospitalization, Disabling)
  Sender: FDA-Public Use
  Company Number: US-B.I. PHARMACEUTICALS,INC./RIDGEFIELD-2012-BP-01134BP

PATIENT
  Sex: Female
  Weight: 80 kg

DRUGS (5)
  1. PRADAXA [Suspect]
     Indication: ATRIAL FIBRILLATION
     Dosage: 110 MG
     Route: 048
  2. ESTROGENIC SUBSTANCE [Concomitant]
  3. LASIX [Concomitant]
  4. ENALAPRIL MALEATE [Concomitant]
  5. LOVASTATIN [Concomitant]

REACTIONS (1)
  - ISCHAEMIC STROKE [None]
